FAERS Safety Report 6634010-0 (Version None)
Quarter: 2010Q1

REPORT INFORMATION
  Report Type: 
  Country: None (occurrence: None)
  Receive Date: 20100315
  Receipt Date: 20100303
  Transmission Date: 20100710
  Serious: Yes (Hospitalization)
  Sender: FDA-Public Use
  Company Number: PHHY2010CH12160

PATIENT
  Age: 81 Year
  Sex: Female

DRUGS (3)
  1. CO-DIOVAN [Suspect]
     Dosage: 1 DF PER DAY
     Dates: end: 20090514
  2. CEDUR [Concomitant]
     Dosage: 1 DF PER DAY
  3. FOLIC ACID [Concomitant]
     Dosage: 1 MG PER DAY

REACTIONS (2)
  - HERPES ZOSTER [None]
  - HYPONATRAEMIA [None]
